FAERS Safety Report 7888666-5 (Version None)
Quarter: 2011Q4

REPORT INFORMATION
  Report Type: 
  Country: None (occurrence: None)
  Receive Date: 20111103
  Receipt Date: 20111028
  Transmission Date: 20120403
  Serious: Yes (Other)
  Sender: FDA-Public Use
  Company Number: US-BAYER-2011-098652

PATIENT
  Age: 44 Year
  Sex: Female

DRUGS (2)
  1. BETASERON [Suspect]
     Indication: CLINICALLY ISOLATED SYNDROME
     Dosage: 8 MIU, QOD
     Route: 058
     Dates: start: 20071029
  2. BETASERON [Suspect]
     Indication: RELAPSING-REMITTING MULTIPLE SCLEROSIS

REACTIONS (6)
  - INJECTION SITE MASS [None]
  - INJECTION SITE PAIN [None]
  - PANNICULITIS [None]
  - INJECTION SITE DISCHARGE [None]
  - INJECTION SITE ERYTHEMA [None]
  - INJECTION SITE NECROSIS [None]
